FAERS Safety Report 5574313-4 (Version None)
Quarter: 2007Q4

REPORT INFORMATION
  Report Type: 
  Country: None (occurrence: None)
  Receive Date: 20071221
  Receipt Date: 20071206
  Transmission Date: 20080405
  Serious: Yes (Hospitalization)
  Sender: FDA-Public Use
  Company Number: US021953

PATIENT
  Age: 59 Year
  Sex: Male

DRUGS (12)
  1. ACTIQ [Suspect]
     Indication: FAILED BACK SURGERY SYNDROME
     Dosage: 400 UG TID ORAL
     Route: 048
     Dates: start: 20020917, end: 20070119
  2. DURAGESIC-100 [Suspect]
     Indication: FAILED BACK SURGERY SYNDROME
     Dosage: 75 UG Q72HR TRANSDERMAL
     Route: 062
     Dates: start: 20021121, end: 20070119
  3. ARAVA /-1414801/ [Concomitant]
  4. LEXAPRO [Concomitant]
  5. ZELNORM [Concomitant]
  6. ALLEGRA /0121420 [Concomitant]
  7. LIPITOR [Concomitant]
  8. NEXIUM [Concomitant]
  9. ATENOLOL [Concomitant]
  10. FOSAMAX [Concomitant]
  11. VALIUM [Concomitant]
  12. DILAUDID [Suspect]
     Indication: FAILED BACK SURGERY SYNDROME
     Dosage: 4 MG TID
     Dates: end: 20061201

REACTIONS (5)
  - ABNORMAL BEHAVIOUR [None]
  - DRUG DEPENDENCE [None]
  - DRUG WITHDRAWAL SYNDROME [None]
  - OVERDOSE [None]
  - TOOTH LOSS [None]
